FAERS Safety Report 4515331-4 (Version None)
Quarter: 2004Q4

REPORT INFORMATION
  Report Type: 
  Country: None (occurrence: None)
  Receive Date: 20041126
  Receipt Date: 20041117
  Transmission Date: 20050328
  Serious: Yes (Other)
  Sender: FDA-Public Use
  Company Number: HQWYE561219NOV04

PATIENT
  Age: 56 Year
  Sex: Female

DRUGS (9)
  1. EFFEXOR XR [Suspect]
     Dosage: 300 MG
     Dates: start: 20040101
  2. AMBIEN [Suspect]
     Indication: INSOMNIA
     Dosage: 100 MG
  3. ENDOCET (OXYCODONE HYDROCHLORIDE/PARACETAMOL) [Suspect]
     Indication: PAIN
     Dosage: 7.5/3.25 EVERY 4 HOURS THROUGHOUT THE DAY
  4. HYDROXYZINE [Suspect]
     Indication: PAIN
     Dosage: 25 MG IN THE EVENING
  5. MAGNESIUM (MAGNESIUM) [Suspect]
     Dosage: 400 MG
  6. NEURONTIN [Suspect]
     Indication: PAIN
     Dosage: ONE IN AM, TWO IN EVENING
  7. PREMARIN [Suspect]
  8. TRAZODONE HCL [Suspect]
     Indication: PAIN
     Dosage: 100 MG IN THE EVENING
  9. UNSPECIFIED VITAMINS (UNSPECIFIED VITAMINS) [Suspect]

REACTIONS (11)
  - DIFFICULTY IN WALKING [None]
  - DRUG INTERACTION [None]
  - DYSARTHRIA [None]
  - FEELING COLD [None]
  - JOINT STIFFNESS [None]
  - MOBILITY DECREASED [None]
  - MUSCULOSKELETAL STIFFNESS [None]
  - NIGHTMARE [None]
  - PAIN [None]
  - SPEECH DISORDER [None]
  - TENDERNESS [None]
